FAERS Safety Report 25140490 (Version 3)
Quarter: 2025Q4

REPORT INFORMATION
  Report Type: Spontaneous
  Country: US (occurrence: US)
  Receive Date: 20250331
  Receipt Date: 20251117
  Transmission Date: 20260117
  Serious: Yes (Life-Threatening, Hospitalization, Other)
  Sender: PFIZER
  Company Number: US-MLMSERVICE-20250317-PI445579-00145-1

PATIENT
  Age: 43 Year
  Sex: Female

DRUGS (7)
  1. FENTANYL CITRATE [Interacting]
     Active Substance: FENTANYL CITRATE
     Dosage: INTRAOPERATIVE
  2. DULOXETINE [Interacting]
     Active Substance: DULOXETINE
     Indication: Anxiety
     Dosage: UNK
  3. DULOXETINE [Interacting]
     Active Substance: DULOXETINE
     Indication: Depression
  4. ASENAPINE [Interacting]
     Active Substance: ASENAPINE
     Indication: Mood swings
     Dosage: UNK
  5. TRAZODONE [Interacting]
     Active Substance: TRAZODONE HYDROCHLORIDE
     Indication: Insomnia
     Dosage: UNK
  6. DIPHENHYDRAMINE [Interacting]
     Active Substance: DIPHENHYDRAMINE
     Indication: Insomnia
     Dosage: HIGH-DOSE,  300-500MG AS A SLEEP AID  FOR OVER A YEAR
  7. DIPHENHYDRAMINE [Interacting]
     Active Substance: DIPHENHYDRAMINE
     Dosage: 50 MG
     Route: 042

REACTIONS (3)
  - Serotonin syndrome [Recovering/Resolving]
  - Drug interaction [Recovered/Resolved]
  - Drug abuse [Recovering/Resolving]
